FAERS Safety Report 11979799 (Version 6)
Quarter: 2016Q2

REPORT INFORMATION
  Report Type: Report from Study
  Country: US (occurrence: US)
  Receive Date: 20160129
  Receipt Date: 20160424
  Transmission Date: 20160815
  Serious: Yes (Hospitalization, Other)
  Sender: FDA-Public Use
  Company Number: US-AMGEN-USASL2016009160

PATIENT
  Age: 50 Year
  Sex: Male

DRUGS (4)
  1. ENBREL [Suspect]
     Active Substance: ETANERCEPT
     Indication: PSORIATIC ARTHROPATHY
  2. PREDNISONE. [Concomitant]
     Active Substance: PREDNISONE
     Indication: PSORIATIC ARTHROPATHY
  3. PREDNISONE. [Concomitant]
     Active Substance: PREDNISONE
     Indication: BRONCHITIS
     Dosage: 5 MG, QD
  4. ENBREL [Suspect]
     Active Substance: ETANERCEPT
     Indication: RHEUMATOID ARTHRITIS
     Dosage: 50 MG, WEEKLY
     Route: 058
     Dates: start: 20151224, end: 20160221

REACTIONS (8)
  - Acute myocardial infarction [Recovering/Resolving]
  - Eye pain [Recovered/Resolved]
  - Injection site discolouration [Unknown]
  - Bronchitis [Recovered/Resolved]
  - Injection site erythema [Recovered/Resolved]
  - Injection site dryness [Unknown]
  - Chest pain [Unknown]
  - Headache [Unknown]

NARRATIVE: CASE EVENT DATE: 2016
